FAERS Safety Report 9537241 (Version 1)
Quarter: 2013Q3

REPORT INFORMATION
  Report Type: Spontaneous
  Country: US (occurrence: US)
  Receive Date: 20130919
  Receipt Date: 20130919
  Transmission Date: 20140515
  Serious: No
  Sender: FDA-Public Use
  Company Number: US-PURDUE-USA-2013-0098548

PATIENT
  Age: 57 Year
  Sex: Female

DRUGS (1)
  1. INTERMEZZO [Suspect]
     Indication: TERMINAL INSOMNIA
     Dosage: 3.5 MG, NOCTE
     Route: 060

REACTIONS (3)
  - Incorrect dose administered [Unknown]
  - Abnormal behaviour [Unknown]
  - Memory impairment [Unknown]
